FAERS Safety Report 26070227 (Version 1)
Quarter: 2025Q4

REPORT INFORMATION
  Report Type: Spontaneous
  Country: CH (occurrence: CH)
  Receive Date: 20251120
  Receipt Date: 20251120
  Transmission Date: 20260117
  Serious: Yes (Hospitalization, Other)
  Sender: SANOFI AVENTIS
  Company Number: None

PATIENT
  Age: 29 Year
  Sex: Female

DRUGS (3)
  1. ZOLPIDEM TARTRATE [Interacting]
     Active Substance: ZOLPIDEM TARTRATE
     Dosage: 60 MG, 1X
     Dates: start: 20251031, end: 20251031
  2. CLOZAPINE [Interacting]
     Active Substance: CLOZAPINE
     Dosage: 900 MG, 1X
     Dates: start: 20251031, end: 20251031
  3. LORAZEPAM [Interacting]
     Active Substance: LORAZEPAM
     Dosage: 25 MG, 1X
     Dates: start: 20251031, end: 20251031

REACTIONS (6)
  - Altered state of consciousness [Recovered/Resolved]
  - Respiratory failure [Recovered/Resolved]
  - Suicide attempt [Recovered/Resolved]
  - Respiratory acidosis [Recovered/Resolved]
  - Drug interaction [Recovered/Resolved]
  - Intentional overdose [Recovered/Resolved]

NARRATIVE: CASE EVENT DATE: 20251031
